FAERS Safety Report 5765637-6 (Version None)
Quarter: 2008Q2

REPORT INFORMATION
  Report Type: 
  Country: None (occurrence: None)
  Receive Date: 20080611
  Receipt Date: 20080529
  Transmission Date: 20081010
  Serious: Yes (Hospitalization)
  Sender: FDA-Public Use
  Company Number: IE-ROCHE-567463

PATIENT
  Age: 75 Year
  Sex: Female

DRUGS (3)
  1. BONIVA [Suspect]
     Indication: OSTEOPOROSIS
     Dosage: RECIEVED VIA 'NG TUBE'.
     Route: 048
  2. ZOFRAN [Concomitant]
  3. MOTILIUM [Concomitant]
     Dosage: DRUG NAME: MOTILLIUM.

REACTIONS (1)
  - OESOPHAGEAL CARCINOMA [None]
